FAERS Safety Report 10312586 (Version 1)
Quarter: 2014Q3

REPORT INFORMATION
  Report Type: Spontaneous
  Country: IN (occurrence: None)
  Receive Date: 20140716
  Receipt Date: 20140716
  Transmission Date: 20150326
  Serious: Yes (Death, Hospitalization)
  Sender: FDA-Public Use
  Company Number: IMP_07727_2014

PATIENT
  Age: 48 Year
  Sex: Male

DRUGS (4)
  1. CARBAMAZEPINE (CARBAMAZEPINE) [Suspect]
     Active Substance: CARBAMAZEPINE
     Indication: POST-TRAUMATIC EPILEPSY
  2. VALPROIC ACID (VALPROIC ACID) [Suspect]
     Active Substance: VALPROIC ACID
     Indication: POST-TRAUMATIC EPILEPSY
  3. CLOBAZAM (CLOBAZAM) [Suspect]
     Active Substance: CLOBAZAM
     Indication: POST-TRAUMATIC EPILEPSY
  4. HYPOGLYCEMIC AGENTS [Concomitant]

REACTIONS (12)
  - Rales [None]
  - Blood urea increased [None]
  - Hyperammonaemic encephalopathy [None]
  - Ammonia increased [None]
  - Cough [None]
  - Overdose [None]
  - Coma scale abnormal [None]
  - Nephropathy [None]
  - Nosocomial infection [None]
  - Haemodialysis [None]
  - Septic shock [None]
  - Blood creatinine increased [None]
